FAERS Safety Report 17656274 (Version 2)
Quarter: 2020Q2

REPORT INFORMATION
  Report Type: Report from Study
  Country: CO (occurrence: CO)
  Receive Date: 20200410
  Receipt Date: 20200611
  Transmission Date: 20200713
  Serious: Yes (Other)
  Sender: FDA-Public Use
  Company Number: CO-JNJFOC-20171129675

PATIENT
  Age: 79 Year
  Sex: Female
  Weight: 75 kg

DRUGS (11)
  1. SIMPONI [Suspect]
     Active Substance: GOLIMUMAB
     Route: 058
     Dates: start: 20190228, end: 20190430
  2. SIMPONI [Suspect]
     Active Substance: GOLIMUMAB
     Dosage: ONGOING
     Route: 058
     Dates: start: 20190609, end: 20190609
  3. SIMPONI [Suspect]
     Active Substance: GOLIMUMAB
     Indication: PSORIATIC ARTHROPATHY
     Dosage: ONGOING
     Route: 058
     Dates: start: 20140116, end: 20180520
  4. ASA [Concomitant]
     Active Substance: ASPIRIN
     Route: 065
  5. SIMPONI [Suspect]
     Active Substance: GOLIMUMAB
     Route: 058
     Dates: start: 20190729
  6. CALCIUM [Concomitant]
     Active Substance: CALCIUM
     Route: 065
  7. ALENDRONATE [Concomitant]
     Active Substance: ALENDRONATE SODIUM
     Route: 065
  8. LOSARTAN. [Concomitant]
     Active Substance: LOSARTAN
     Route: 065
  9. SIMPONI [Suspect]
     Active Substance: GOLIMUMAB
     Route: 058
     Dates: start: 20180928, end: 20181126
  10. LYRICA [Concomitant]
     Active Substance: PREGABALIN
     Dosage: 150/300 MILLIGRAM
     Route: 065
  11. SERTRALINE [Concomitant]
     Active Substance: SERTRALINE HYDROCHLORIDE
     Route: 065

REACTIONS (7)
  - Product dose omission [Unknown]
  - Drug delivery system malfunction [Unknown]
  - Psoriasis [Not Recovered/Not Resolved]
  - Influenza [Recovering/Resolving]
  - Psoriatic arthropathy [Not Recovered/Not Resolved]
  - Dandruff [Not Recovered/Not Resolved]
  - Bronchitis [Recovering/Resolving]

NARRATIVE: CASE EVENT DATE: 2017
